FAERS Safety Report 25583887 (Version 2)
Quarter: 2025Q3

REPORT INFORMATION
  Report Type: Spontaneous
  Country: US (occurrence: US)
  Receive Date: 20250721
  Receipt Date: 20250811
  Transmission Date: 20251020
  Serious: Yes (Hospitalization)
  Sender: Invivyd
  Company Number: US-INVIVYD-US-INV-25-000270

PATIENT
  Sex: Male

DRUGS (1)
  1. PEMGARDA [Suspect]
     Active Substance: PEMIVIBART
     Indication: Product used for unknown indication
     Route: 042
     Dates: start: 20250703, end: 20250703

REACTIONS (11)
  - Heart rate increased [Unknown]
  - Oropharyngeal pain [Unknown]
  - Nasal discomfort [Recovered/Resolved]
  - Chest discomfort [Not Recovered/Not Resolved]
  - Abdominal discomfort [Unknown]
  - Nausea [Recovered/Resolved]
  - Hypertension [Recovered/Resolved]
  - Blood glucose increased [Recovered/Resolved]
  - Throat tightness [Unknown]
  - Sensation of foreign body [Unknown]
  - Diarrhoea [Not Recovered/Not Resolved]

NARRATIVE: CASE EVENT DATE: 20250705
